FAERS Safety Report 4813119-8 (Version None)
Quarter: 2005Q4

REPORT INFORMATION
  Report Type: 
  Country: None (occurrence: None)
  Receive Date: 20051026
  Receipt Date: 20051013
  Transmission Date: 20060501
  Serious: Yes (Death)
  Sender: FDA-Public Use
  Company Number: 218629

PATIENT
  Age: 81 Year
  Sex: 0

DRUGS (4)
  1. RITUXIMAB (RITUXIMAB) CONC FOR SOLUTION FOR INFUSION [Suspect]
     Indication: HAIRY CELL LEUKAEMIA
     Dosage: 375 MG/M2, 1/WEEK, INTRAVENOUS
     Route: 042
  2. ACETAMINOPHEN [Concomitant]
  3. DIPHENHYDRAMINE (DIPHENYDRAMINE NOS) [Concomitant]
  4. ALLOPURINOL [Concomitant]

REACTIONS (2)
  - ABSCESS RUPTURE [None]
  - PERIDIVERTICULAR ABSCESS [None]
